FAERS Safety Report 11659113 (Version 4)
Quarter: 2015Q4

REPORT INFORMATION
  Report Type: Report from Study
  Country: GB (occurrence: GB)
  Receive Date: 20151026
  Receipt Date: 20151215
  Transmission Date: 20160304
  Serious: Yes (Life-Threatening, Hospitalization)
  Sender: FDA-Public Use
  Company Number: GB-ACCORD-034775

PATIENT
  Age: 62 Year
  Sex: Female
  Weight: 70 kg

DRUGS (7)
  1. PREGABALIN. [Concomitant]
     Active Substance: PREGABALIN
     Indication: PAIN
     Route: 061
     Dates: start: 20150601
  2. FLUOROURACIL. [Suspect]
     Active Substance: FLUOROURACIL
     Indication: COLORECTAL CANCER
     Dosage: DAY 1 OF EVERY 14-DAY CYCLE.
     Route: 042
     Dates: start: 20150821
  3. MIRTAZAPINE. [Concomitant]
     Active Substance: MIRTAZAPINE
     Indication: ANXIETY
     Route: 048
     Dates: start: 20150601
  4. VELIPARIB [Suspect]
     Active Substance: VELIPARIB
     Indication: COLORECTAL CANCER
     Dosage: DAYS -2 THROUGH 5 OF EVERY 14 DAY CYCLE
     Route: 048
     Dates: start: 20150819
  5. FOLINIC ACID [Concomitant]
     Active Substance: LEUCOVORIN
     Indication: COLORECTAL CANCER
     Route: 042
     Dates: start: 20150821
  6. IRINOTECAN [Suspect]
     Active Substance: IRINOTECAN
     Indication: COLORECTAL CANCER
     Dosage: DAY 1 OF EVERY 14-DAY CYCLE
     Route: 042
     Dates: start: 20150821
  7. ZOMORPH [Concomitant]
     Active Substance: MORPHINE SULFATE
     Indication: PAIN
     Route: 048
     Dates: start: 20150401

REACTIONS (9)
  - Lung infection [Recovered/Resolved]
  - Nausea [Recovered/Resolved]
  - Dizziness [Unknown]
  - Disturbance in attention [Unknown]
  - Anal infection [Unknown]
  - Febrile neutropenia [Unknown]
  - Chills [Unknown]
  - Pulmonary embolism [Unknown]
  - Aphasia [Unknown]

NARRATIVE: CASE EVENT DATE: 20150822
